FAERS Safety Report 16854118 (Version 1)
Quarter: 2019Q3

REPORT INFORMATION
  Report Type: Spontaneous
  Country: US (occurrence: US)
  Receive Date: 20190926
  Receipt Date: 20190926
  Transmission Date: 20191005
  Serious: No
  Sender: FDA-Public Use
  Company Number: US-STRIDES ARCOLAB LIMITED-2019SP006055

PATIENT
  Age: 31 Year
  Sex: Male

DRUGS (18)
  1. METHADONE [Concomitant]
     Active Substance: METHADONE HYDROCHLORIDE
     Indication: MUSCULOSKELETAL PAIN
     Dosage: UNK
     Route: 065
  2. CETUXIMAB. [Concomitant]
     Active Substance: CETUXIMAB
     Indication: CHEMOTHERAPY
     Dosage: UNK
     Route: 065
  3. NIVOLUMAB [Concomitant]
     Active Substance: NIVOLUMAB
     Indication: CHEMOTHERAPY
     Dosage: UNK
     Route: 065
  4. ACETAMINOPHEN. [Concomitant]
     Active Substance: ACETAMINOPHEN
     Indication: MUSCULOSKELETAL PAIN
     Dosage: UNK
     Route: 065
  5. LIDOCAINE. [Suspect]
     Active Substance: LIDOCAINE
     Indication: WOUND COMPLICATION
     Dosage: 60 MG, EVERY HOUR, CONTINIOUS INFUSION
     Route: 042
  6. MORPHINE [Concomitant]
     Active Substance: MORPHINE
     Indication: WOUND COMPLICATION
  7. GABAPENTIN. [Concomitant]
     Active Substance: GABAPENTIN
     Indication: MUSCULOSKELETAL PAIN
     Dosage: UNK
     Route: 065
  8. GABAPENTIN. [Concomitant]
     Active Substance: GABAPENTIN
     Dosage: UNK;DOSE WAS REDUCED DUE TO ONSET OF CENTRAL NERVOUS SYSTEM SYMPTOMS
     Route: 065
  9. GABAPENTIN. [Concomitant]
     Active Substance: GABAPENTIN
     Indication: BACK PAIN
     Dosage: UNK; DOSE WAS INCREASED
     Route: 065
  10. KETAMINE [Concomitant]
     Active Substance: KETAMINE
     Indication: MUSCULOSKELETAL PAIN
     Dosage: 5 MG/HOUR
     Route: 042
  11. KETAMINE [Concomitant]
     Active Substance: KETAMINE
     Indication: BACK PAIN
     Dosage: 10 MG/HOUR
     Route: 042
  12. FENTANYL. [Concomitant]
     Active Substance: FENTANYL
     Indication: MUSCULOSKELETAL PAIN
     Dosage: UNK, PRN
     Route: 065
  13. HYDROMORPHONE [Concomitant]
     Active Substance: HYDROMORPHONE
     Indication: PAIN
     Dosage: UNK
     Route: 042
  14. HYDROMORPHONE [Concomitant]
     Active Substance: HYDROMORPHONE
     Indication: WOUND COMPLICATION
  15. LIDOCAINE. [Suspect]
     Active Substance: LIDOCAINE
     Indication: CANCER PAIN
     Dosage: 150 MG, BID (BEFORE EACH DRESSING)
     Route: 042
  16. MORPHINE [Concomitant]
     Active Substance: MORPHINE
     Indication: PAIN
     Dosage: UNK
     Route: 065
  17. METHADONE [Concomitant]
     Active Substance: METHADONE HYDROCHLORIDE
     Indication: BACK PAIN
  18. ACETAMINOPHEN. [Concomitant]
     Active Substance: ACETAMINOPHEN
     Indication: BACK PAIN

REACTIONS (2)
  - Confusional state [Unknown]
  - Lethargy [Unknown]
